FAERS Safety Report 8548258-1 (Version None)
Quarter: 2012Q3

REPORT INFORMATION
  Report Type: 
  Country: None (occurrence: None)
  Receive Date: 20120730
  Receipt Date: 20120716
  Transmission Date: 20120928
  Serious: No
  Sender: FDA-Public Use
  Company Number: BR-JNJFOC-20120702711

PATIENT
  Age: 55 Year
  Sex: Female
  Weight: 53 kg

DRUGS (4)
  1. PREDNISONE [Concomitant]
     Indication: GASTROINTESTINAL CARCINOMA
     Route: 065
     Dates: start: 20111001
  2. CHEMOTHERAPY [Concomitant]
     Indication: GASTROINTESTINAL CARCINOMA
     Route: 065
     Dates: end: 20120601
  3. DURAGESIC-100 [Suspect]
     Indication: PAIN IN EXTREMITY
     Route: 062
     Dates: start: 20120618
  4. LYRICA [Concomitant]
     Indication: PAIN IN EXTREMITY
     Route: 065
     Dates: start: 20110101

REACTIONS (3)
  - PRODUCT QUALITY ISSUE [None]
  - PAIN [None]
  - WRONG TECHNIQUE IN DRUG USAGE PROCESS [None]
